FAERS Safety Report 20495183 (Version 1)
Quarter: 2022Q1

REPORT INFORMATION
  Report Type: Spontaneous
  Country: US (occurrence: US)
  Receive Date: 20220221
  Receipt Date: 20220221
  Transmission Date: 20220423
  Serious: No
  Sender: FDA-Public Use
  Company Number: US-GALDERMA-US2022000455

PATIENT

DRUGS (5)
  1. PROACTIV MD ADAPALENE ACNE TREATMENT [Suspect]
     Active Substance: ADAPALENE
     Indication: Product used for unknown indication
     Dosage: 1 DOSAGE FORM, PERIODICALLY AS NEEDED
     Route: 061
  2. COSMETICS [Concomitant]
     Active Substance: COSMETICS
     Indication: Product used for unknown indication
     Dosage: 1 DOSAGE FORM, PERIODICALLY AS NEEDED
     Route: 061
  3. Proactiv Gentle Formula Clarifying Day Lotion [Concomitant]
     Indication: Product used for unknown indication
     Dosage: 1 DOSAGE FORM, PERIODICALLY AS NEEDED
     Route: 061
  4. Proactiv Gentle Formula Clarifying Night Lotion [Concomitant]
     Indication: Product used for unknown indication
     Dosage: 1 DOSAGE FORM, PERIODICALLY AS NEEDED
     Route: 061
  5. PROACTIV PLUS RETEXTURIZING TONER [Concomitant]
     Active Substance: SALICYLIC ACID
     Indication: Product used for unknown indication
     Dosage: 1 DOSAGE FORM, PERIODICALLY AS NEEDED
     Route: 061

REACTIONS (2)
  - Dry skin [Unknown]
  - Product use issue [Recovered/Resolved]
